FAERS Safety Report 20166941 (Version 1)
Quarter: 2021Q4

REPORT INFORMATION
  Report Type: Spontaneous
  Country: CN (occurrence: CN)
  Receive Date: 20211209
  Receipt Date: 20211209
  Transmission Date: 20220303
  Serious: Yes (Other)
  Sender: FDA-Public Use
  Company Number: CN-PFIZER INC-202101676817

PATIENT
  Age: 34 Year
  Sex: Male
  Weight: 50 kg

DRUGS (1)
  1. METHYLPREDNISOLONE [Suspect]
     Active Substance: METHYLPREDNISOLONE
     Indication: Stomatitis
     Dosage: 8 MG, 2X/DAY
     Route: 048
     Dates: start: 20211121, end: 20211121

REACTIONS (2)
  - Cleft lip [Recovering/Resolving]
  - Lip ulceration [Recovering/Resolving]

NARRATIVE: CASE EVENT DATE: 20211124
